FAERS Safety Report 25400886 (Version 2)
Quarter: 2025Q2

REPORT INFORMATION
  Report Type: Spontaneous
  Country: IT (occurrence: IT)
  Receive Date: 20250605
  Receipt Date: 20250616
  Transmission Date: 20250716
  Serious: Yes (Other)
  Sender: PFIZER
  Company Number: IT-PFIZER INC-PV202500066005

PATIENT
  Age: 48 Year
  Sex: Male

DRUGS (8)
  1. HEPARIN SODIUM [Suspect]
     Active Substance: HEPARIN SODIUM
     Indication: Anticoagulant therapy
     Route: 042
  2. HEPARIN SODIUM [Suspect]
     Active Substance: HEPARIN SODIUM
     Indication: Cardiac ventricular thrombosis
  3. FUROSEMIDE [Concomitant]
     Active Substance: FUROSEMIDE
     Indication: Cardiac ventricular thrombosis
  4. FUROSEMIDE [Concomitant]
     Active Substance: FUROSEMIDE
     Indication: Anticoagulant therapy
  5. RAMIPRIL [Concomitant]
     Active Substance: RAMIPRIL
     Indication: Cardiac ventricular thrombosis
  6. RAMIPRIL [Concomitant]
     Active Substance: RAMIPRIL
     Indication: Anticoagulant therapy
  7. BISOPROLOL [Concomitant]
     Active Substance: BISOPROLOL
     Indication: Cardiac ventricular thrombosis
  8. BISOPROLOL [Concomitant]
     Active Substance: BISOPROLOL
     Indication: Anticoagulant therapy

REACTIONS (3)
  - Hemiparesis [Recovered/Resolved]
  - Aphasia [Recovered/Resolved]
  - Off label use [Unknown]
